FAERS Safety Report 20508995 (Version 1)
Quarter: 2022Q1

REPORT INFORMATION
  Report Type: Report from Study
  Country: NL (occurrence: NL)
  Receive Date: 20220223
  Receipt Date: 20220223
  Transmission Date: 20220424
  Serious: Yes (Life-Threatening, Hospitalization)
  Sender: FDA-Public Use
  Company Number: NL-IMMUNOMEDICS, INC.-2020IMMU000578

PATIENT
  Age: 74 Year
  Sex: Female
  Weight: 73.2 kg

DRUGS (12)
  1. SACITUZUMAB GOVITECAN [Suspect]
     Active Substance: SACITUZUMAB GOVITECAN
     Indication: Breast cancer metastatic
     Dosage: 10 MG/KG DAYS 1 AND 8 OF 21-DAYS CYCLE
     Route: 042
     Dates: start: 20200908, end: 20200908
  2. SACITUZUMAB GOVITECAN [Suspect]
     Active Substance: SACITUZUMAB GOVITECAN
     Dosage: 10 MG/KG DAYS 1 AND 8 OF 21-DAYS CYCLE
     Route: 042
     Dates: start: 20200915, end: 20200915
  3. SACITUZUMAB GOVITECAN [Suspect]
     Active Substance: SACITUZUMAB GOVITECAN
     Dosage: 7.5 MG/KG (25% REDUCTION) DAYS 1 AND 8 OF 21-DAYS CYCLE
     Route: 042
     Dates: start: 20201013, end: 20201013
  4. LOPERAMIDE [Concomitant]
     Active Substance: LOPERAMIDE
     Indication: Diarrhoea
     Dosage: 2 MG, PRN
     Route: 048
     Dates: start: 20200912
  5. CALCIUM\CHOLECALCIFEROL [Concomitant]
     Active Substance: CALCIUM\CHOLECALCIFEROL
     Indication: Mineral supplementation
     Dosage: 500 MG/800 IU, QD
     Route: 048
     Dates: start: 20200810
  6. PREDNISONE [Concomitant]
     Active Substance: PREDNISONE
     Indication: Adverse drug reaction
     Dosage: 5 MG, QD
     Route: 048
     Dates: start: 20190228
  7. PREDNISONE [Concomitant]
     Active Substance: PREDNISONE
     Indication: Premedication
  8. ESOMEPRAZOLE [Concomitant]
     Active Substance: ESOMEPRAZOLE
     Indication: Nausea
     Dosage: 40 MG, QD
     Route: 048
     Dates: start: 20200920
  9. NITROFURANTOIN [Concomitant]
     Active Substance: NITROFURANTOIN
     Indication: Urinary tract infection
     Dosage: 50 MG, QD, AT NIGHT AS MENTAINANCE OF TREATMENT
     Route: 065
     Dates: start: 20200905
  10. CANNABIS SATIVA SUBSP. INDICA TOP [Concomitant]
     Active Substance: CANNABIS SATIVA SUBSP. INDICA TOP
     Indication: Product used for unknown indication
     Dosage: 3 DROPS 1 X PER DAY BEFORE GOING TO SLEEP
     Dates: end: 20200907
  11. ASCORBIC ACID\CRANBERRY [Concomitant]
     Active Substance: ASCORBIC ACID\CRANBERRY
     Indication: Product used for unknown indication
     Route: 065
  12. BREWERS YEAST [NICOTINAMIDE;RIBOFLAVIN;THIAMINE HYDROCHLORIDE] [Concomitant]
     Indication: Product used for unknown indication
     Route: 065

REACTIONS (1)
  - Febrile neutropenia [Recovered/Resolved with Sequelae]

NARRATIVE: CASE EVENT DATE: 20200920
